FAERS Safety Report 12061241 (Version 1)
Quarter: 2016Q1

REPORT INFORMATION
  Report Type: Spontaneous
  Country: US (occurrence: US)
  Receive Date: 20160210
  Receipt Date: 20160210
  Transmission Date: 20160526
  Serious: No
  Sender: FDA-Public Use
  Company Number: US-ALLERGAN-1417642US

PATIENT
  Age: 53 Year
  Sex: Female

DRUGS (3)
  1. BOTOX [Suspect]
     Active Substance: ONABOTULINUMTOXINA
     Indication: MIGRAINE
     Dosage: 200 UNITS, SINGLE
     Route: 030
     Dates: start: 201406, end: 201406
  2. BOTOX [Suspect]
     Active Substance: ONABOTULINUMTOXINA
     Indication: URINARY INCONTINENCE
     Dosage: 200 UNITS, SINGLE
     Dates: start: 201405, end: 201405
  3. BUTRANS [Concomitant]
     Active Substance: BUPRENORPHINE
     Indication: MIGRAINE
     Dosage: UNK

REACTIONS (15)
  - Eyelid ptosis [Not Recovered/Not Resolved]
  - Chest pain [Not Recovered/Not Resolved]
  - Influenza like illness [Not Recovered/Not Resolved]
  - Hyperhidrosis [Not Recovered/Not Resolved]
  - Pain in jaw [Not Recovered/Not Resolved]
  - Headache [Not Recovered/Not Resolved]
  - Dysphonia [Not Recovered/Not Resolved]
  - Eye swelling [Not Recovered/Not Resolved]
  - Overdose [Unknown]
  - Choking [Not Recovered/Not Resolved]
  - Back pain [Not Recovered/Not Resolved]
  - Dysphagia [Not Recovered/Not Resolved]
  - Palpitations [Not Recovered/Not Resolved]
  - Insomnia [Not Recovered/Not Resolved]
  - Hypoaesthesia [Not Recovered/Not Resolved]

NARRATIVE: CASE EVENT DATE: 201405
